APPROVED DRUG PRODUCT: DIMETANE-DX
Active Ingredient: BROMPHENIRAMINE MALEATE; DEXTROMETHORPHAN HYDROBROMIDE; PSEUDOEPHEDRINE HYDROCHLORIDE
Strength: 2MG/5ML;10MG/5ML;30MG/5ML **Federal Register determination that product was not discontinued or withdrawn for safety or effectiveness reasons**
Dosage Form/Route: SYRUP;ORAL
Application: N019279 | Product #001
Applicant: AH ROBINS CO
Approved: Aug 24, 1984 | RLD: Yes | RS: No | Type: DISCN